FAERS Safety Report 12610035 (Version 1)
Quarter: 2016Q3

REPORT INFORMATION
  Report Type: Spontaneous
  Country: US (occurrence: None)
  Receive Date: 20160729
  Receipt Date: 20160729
  Transmission Date: 20161109
  Serious: Yes (Other)
  Sender: FDA-Public Use
  Company Number: None

PATIENT
  Age: 32 Year
  Sex: Female
  Weight: 142.88 kg

DRUGS (1)
  1. NUVARING [Suspect]
     Active Substance: ETHINYL ESTRADIOL\ETONOGESTREL
     Indication: CONTRACEPTION
     Dosage: CHANGE EVERY MONTH
     Route: 067
     Dates: start: 20160718, end: 20160725

REACTIONS (3)
  - Vulvovaginal discomfort [None]
  - Vaginal discharge [None]
  - Vulvovaginal dryness [None]

NARRATIVE: CASE EVENT DATE: 20160718
